FAERS Safety Report 6061660-5 (Version None)
Quarter: 2009Q1

REPORT INFORMATION
  Report Type: 
  Country: None (occurrence: None)
  Receive Date: 20090202
  Receipt Date: 20090126
  Transmission Date: 20090719
  Serious: Yes (Hospitalization, Other)
  Sender: FDA-Public Use
  Company Number: B0551985A

PATIENT
  Age: 54 Year
  Sex: Male

DRUGS (31)
  1. MELPHALAN [Suspect]
     Indication: STEM CELL TRANSPLANT
     Dosage: 170MG PER DAY
     Route: 042
     Dates: start: 20050516, end: 20050517
  2. BUSULFAN [Suspect]
     Indication: BONE MARROW TRANSPLANT
     Route: 065
     Dates: start: 20061101
  3. PREDNISOLONE [Suspect]
     Dosage: 10MG PER DAY
     Route: 065
  4. BORTEZOMIB [Suspect]
     Indication: MULTIPLE MYELOMA
     Route: 042
     Dates: start: 20071112
  5. DEXAMETHASONE [Suspect]
     Indication: MULTIPLE MYELOMA
     Route: 065
     Dates: start: 20071112
  6. FLUDARABINE PHOSPHATE [Suspect]
     Indication: ALLOGENIC BONE MARROW TRANSPLANTATION THERAPY
     Route: 065
     Dates: start: 20061101
  7. TACROLIMUS HYDRATE [Suspect]
     Route: 048
  8. METHYLPREDNISOLONE ACETATE [Suspect]
     Indication: INTERSTITIAL LUNG DISEASE
     Route: 042
  9. LACTEC [Concomitant]
     Route: 042
     Dates: start: 20050501
  10. IMMUNE GLOBULIN INTRAVENOUS (HUMAN) [Concomitant]
     Dates: start: 20050501
  11. KYTRIL [Concomitant]
     Route: 042
     Dates: start: 20050501
  12. SOLU-CORTEF [Concomitant]
     Route: 042
     Dates: start: 20050501
  13. ATARAX [Concomitant]
     Route: 042
     Dates: start: 20050501
  14. UNKNOWN DRUG [Concomitant]
     Route: 042
     Dates: start: 20050501
  15. NEUTROGIN [Concomitant]
     Route: 042
     Dates: start: 20050501
  16. CONTOMIN [Concomitant]
     Route: 030
     Dates: start: 20050501
  17. FUROSEMIDE [Concomitant]
     Route: 042
     Dates: start: 20050501
  18. AREDIA [Concomitant]
     Route: 042
     Dates: start: 20050501
  19. PRIMPERAN TAB [Concomitant]
     Route: 042
     Dates: start: 20050501
  20. AMINOFLUID [Concomitant]
     Route: 042
     Dates: start: 20050501
  21. VITAMEDIN [Concomitant]
     Route: 042
     Dates: start: 20050501
  22. VITACIMIN [Concomitant]
     Route: 065
     Dates: start: 20050501
  23. TRIFLUID [Concomitant]
     Route: 042
     Dates: start: 20050501
  24. FULCALIQ [Concomitant]
     Route: 042
     Dates: start: 20050501
  25. GASTER [Concomitant]
     Route: 065
     Dates: start: 20050501
  26. CIPROXAN [Concomitant]
     Route: 042
     Dates: start: 20050501
  27. VICCLOX [Concomitant]
     Route: 042
     Dates: start: 20050501
  28. PLATELETS [Concomitant]
     Route: 042
     Dates: start: 20050501
  29. BUSCOPAN [Concomitant]
     Route: 042
     Dates: start: 20050501
  30. SOLITA T [Concomitant]
     Route: 042
     Dates: start: 20050501
  31. CHLOR-TRIMETON [Concomitant]
     Route: 042
     Dates: start: 20050501

REACTIONS (16)
  - ANAEMIA [None]
  - ASPARTATE AMINOTRANSFERASE INCREASED [None]
  - BLOOD BILIRUBIN UNCONJUGATED INCREASED [None]
  - BLOOD FIBRINOGEN DECREASED [None]
  - BLOOD LACTATE DEHYDROGENASE INCREASED [None]
  - CHEST PAIN [None]
  - DYSPNOEA [None]
  - ECCHYMOSIS [None]
  - HAEMORRHAGIC DIATHESIS [None]
  - HAPTOGLOBIN DECREASED [None]
  - INTERSTITIAL LUNG DISEASE [None]
  - PETECHIAE [None]
  - PROTHROMBIN TIME PROLONGED [None]
  - RED BLOOD CELL ABNORMALITY [None]
  - THROMBOCYTOPENIA [None]
  - THROMBOTIC MICROANGIOPATHY [None]
